APPROVED DRUG PRODUCT: TOLAZAMIDE
Active Ingredient: TOLAZAMIDE
Strength: 100MG
Dosage Form/Route: TABLET;ORAL
Application: A070159 | Product #001
Applicant: PAR PHARMACEUTICAL INC
Approved: Jan 6, 1986 | RLD: No | RS: No | Type: DISCN